FAERS Safety Report 8479139-X (Version None)
Quarter: 2012Q2

REPORT INFORMATION
  Report Type: 
  Country: None (occurrence: None)
  Receive Date: 20120402
  Receipt Date: 20110405
  Transmission Date: 20120825
  Serious: Yes (Life-Threatening, Hospitalization)
  Sender: FDA-Public Use
  Company Number: 2011EN000095

PATIENT
  Age: 15 Year
  Sex: Male
  Weight: 70.45 kg

DRUGS (1)
  1. ONCASPAR [Suspect]
     Indication: ACUTE LYMPHOCYTIC LEUKAEMIA
     Dosage: 4500 IU;X1;IM
     Route: 030
     Dates: start: 20110224, end: 20110224

REACTIONS (6)
  - HYPERSENSITIVITY [None]
  - URTICARIA [None]
  - SWELLING FACE [None]
  - THROAT TIGHTNESS [None]
  - OEDEMA [None]
  - PERIORBITAL OEDEMA [None]
